FAERS Safety Report 6183457-8 (Version None)
Quarter: 2009Q2

REPORT INFORMATION
  Report Type: 
  Country: None (occurrence: None)
  Receive Date: 20090506
  Receipt Date: 20090427
  Transmission Date: 20091009
  Serious: Yes (Hospitalization)
  Sender: FDA-Public Use
  Company Number: 2009004275

PATIENT
  Age: 73 Year
  Sex: Male
  Weight: 79.3 kg

DRUGS (11)
  1. TRISENOX [Suspect]
     Indication: MYELODYSPLASTIC SYNDROME
     Dosage: (0.1 MG/KG, DAYS 1-5 EVERY WEEK), INTRAVENOUS DRIP
     Route: 041
     Dates: start: 20090302, end: 20090324
  2. DECITABINE (DECITABINE) [Suspect]
     Indication: MYELODYSPLASTIC SYNDROME
     Dosage: (20 MG/M2, DAYS 1-5), INTRAVENOUS
     Route: 042
     Dates: start: 20090302, end: 20090306
  3. ASCORBIC ACID [Suspect]
     Indication: MYELODYSPLASTIC SYNDROME
     Dosage: (1000 MG, DAYS 1-5 EVERY WEEK), INTRAVENOUS
     Route: 042
     Dates: start: 20090302, end: 20090324
  4. LYRICA [Concomitant]
  5. METOPROLOL TARTRATE [Concomitant]
  6. LISINOPRIL [Concomitant]
  7. ZETIA [Concomitant]
  8. FLOMAX (MORNIFLUMATE) [Concomitant]
  9. ALLOPURINOL [Concomitant]
  10. HYDREA [Concomitant]
  11. PROTONIX [Concomitant]

REACTIONS (8)
  - ABDOMINAL DISTENSION [None]
  - ABDOMINAL PAIN [None]
  - ANURIA [None]
  - BLOOD CREATININE INCREASED [None]
  - BLOOD UREA INCREASED [None]
  - HYPOTENSION [None]
  - PERICARDIAL EFFUSION [None]
  - PLEURAL EFFUSION [None]
